FAERS Safety Report 24957377 (Version 3)
Quarter: 2025Q1

REPORT INFORMATION
  Report Type: Report from Study
  Country: CA (occurrence: CA)
  Receive Date: 20250211
  Receipt Date: 20250314
  Transmission Date: 20250408
  Serious: Yes (Hospitalization)
  Sender: JOHNSON AND JOHNSON
  Company Number: CA-JNJFOC-20250209561

PATIENT
  Age: 68 Year
  Sex: Female

DRUGS (2)
  1. SIMPONI [Suspect]
     Active Substance: GOLIMUMAB
     Indication: Colitis ulcerative
     Route: 058
     Dates: start: 20150611
  2. SIMPONI [Suspect]
     Active Substance: GOLIMUMAB
     Route: 058
     Dates: start: 20151212

REACTIONS (1)
  - Pneumonia [Recovering/Resolving]
